FAERS Safety Report 21424373 (Version 1)
Quarter: 2022Q4

REPORT INFORMATION
  Report Type: Spontaneous
  Country: US (occurrence: US)
  Receive Date: 20221007
  Receipt Date: 20221007
  Transmission Date: 20230113
  Serious: Yes (Hospitalization)
  Sender: FDA-Public Use
  Company Number: US-Vifor (International) Inc.-VIT-2022-06849

PATIENT
  Age: 71 Year
  Sex: Male

DRUGS (3)
  1. VELTASSA [Suspect]
     Active Substance: PATIROMER
     Indication: Hyperkalaemia
  2. VELTASSA [Suspect]
     Active Substance: PATIROMER
     Indication: Plasma cell myeloma
  3. POMALYST [Concomitant]
     Active Substance: POMALIDOMIDE
     Dosage: ON HOLD

REACTIONS (2)
  - Renal failure [Not Recovered/Not Resolved]
  - Off label use [Unknown]

NARRATIVE: CASE EVENT DATE: 20220926
